FAERS Safety Report 23575142 (Version 1)
Quarter: 2024Q1

REPORT INFORMATION
  Report Type: Spontaneous
  Country: TW (occurrence: TW)
  Receive Date: 20240228
  Receipt Date: 20240228
  Transmission Date: 20240410
  Serious: Yes (Death)
  Sender: FDA-Public Use
  Company Number: TW-BAUSCH-BL-2024-002978

PATIENT
  Age: 53 Year
  Sex: Male

DRUGS (1)
  1. BRODALUMAB [Suspect]
     Active Substance: BRODALUMAB
     Indication: Psoriatic arthropathy
     Route: 058
     Dates: start: 20231002

REACTIONS (1)
  - Chemical burn [Fatal]

NARRATIVE: CASE EVENT DATE: 20240213
